FAERS Safety Report 4432222-8 (Version None)
Quarter: 2004Q3

REPORT INFORMATION
  Report Type: 
  Country: None (occurrence: None)
  Receive Date: 20040825
  Receipt Date: 20040816
  Transmission Date: 20050211
  Serious: Yes (Hospitalization)
  Sender: FDA-Public Use
  Company Number: DK-ROCHE-377772

PATIENT
  Age: 15 Year
  Sex: Female
  Weight: 60 kg

DRUGS (1)
  1. NAPROSYN [Suspect]
     Dosage: DOSING REGIMEN WAS REPORTED AS 500 MG MAX. BID.
     Route: 048
     Dates: start: 20040809, end: 20040809

REACTIONS (1)
  - SYNCOPE [None]
